FAERS Safety Report 13594080 (Version 4)
Quarter: 2017Q3

REPORT INFORMATION
  Report Type: Report from Study
  Country: US (occurrence: US)
  Receive Date: 20170530
  Receipt Date: 20170718
  Transmission Date: 20171127
  Serious: Yes (Death, Hospitalization, Other)
  Sender: FDA-Public Use
  Company Number: US-ALEXION-A201705685

PATIENT
  Sex: Female

DRUGS (1)
  1. SOLIRIS [Suspect]
     Active Substance: ECULIZUMAB
     Indication: HAEMOLYTIC URAEMIC SYNDROME
     Dosage: UNK
     Route: 042

REACTIONS (11)
  - Diarrhoea [Unknown]
  - Adenovirus infection [Fatal]
  - Infection [Unknown]
  - Nausea [Unknown]
  - Enterocolitis viral [Fatal]
  - Vomiting [Unknown]
  - Pyrexia [Unknown]
  - Oral disorder [Unknown]
  - Adrenal disorder [Fatal]
  - Encephalitis cytomegalovirus [Fatal]
  - Malnutrition [Unknown]

NARRATIVE: CASE EVENT DATE: 20170417
